FAERS Safety Report 16433406 (Version 1)
Quarter: 2019Q2

REPORT INFORMATION
  Report Type: Report from Study
  Country: US (occurrence: US)
  Receive Date: 20190614
  Receipt Date: 20190614
  Transmission Date: 20190711
  Serious: Yes (Death, Hospitalization, Other)
  Sender: FDA-Public Use
  Company Number: PHHO2019US005884

PATIENT
  Age: 76 Year
  Sex: Male
  Weight: 89.7 kg

DRUGS (1)
  1. VOTRIENT [Suspect]
     Active Substance: PAZOPANIB HYDROCHLORIDE
     Indication: FIBROSARCOMA
     Dosage: 600 MG, QD
     Route: 048
     Dates: start: 20190207, end: 20190525

REACTIONS (2)
  - Pneumonia [Unknown]
  - Lung infection [Fatal]

NARRATIVE: CASE EVENT DATE: 20190526
